FAERS Safety Report 18106878 (Version 1)
Quarter: 2020Q3

REPORT INFORMATION
  Report Type: Spontaneous
  Country: US (occurrence: US)
  Receive Date: 20200804
  Receipt Date: 20200804
  Transmission Date: 20201103
  Serious: Yes (Death, Other)
  Sender: FDA-Public Use
  Company Number: US-BTG-202000131

PATIENT
  Age: 66 Year
  Sex: Female

DRUGS (2)
  1. DIGIFAB [Suspect]
     Active Substance: OVINE DIGOXIN IMMUNE FAB
     Indication: BRADYCARDIA
     Route: 065
  2. DIGOXIN. [Suspect]
     Active Substance: DIGOXIN
     Indication: FOETAL HEART RATE DISORDER
     Route: 065

REACTIONS (2)
  - Acute kidney injury [Fatal]
  - Cardiac failure [Fatal]
